FAERS Safety Report 13854132 (Version 6)
Quarter: 2017Q4

REPORT INFORMATION
  Report Type: Spontaneous
  Country: US (occurrence: US)
  Receive Date: 20170810
  Receipt Date: 20171227
  Transmission Date: 20180320
  Serious: Yes (Other)
  Sender: FDA-Public Use
  Company Number: US-PFIZER INC-2017338297

PATIENT
  Age: 65 Year
  Sex: Male
  Weight: 68 kg

DRUGS (2)
  1. VIAGRA [Suspect]
     Active Substance: SILDENAFIL CITRATE
     Indication: SEXUAL DYSFUNCTION
     Dosage: 100 (UNIT NOT SPECIFIED) TAKES WITH WATER, ONCE A MONTH
     Route: 048
     Dates: end: 2017
  2. VIAGRA [Suspect]
     Active Substance: SILDENAFIL CITRATE
     Dosage: ONE AT 5 AM - AFTER EATING NOTHING FOR 8 OR NINE HOURS

REACTIONS (15)
  - Head injury [Unknown]
  - Contusion [Unknown]
  - Fall [Unknown]
  - Dizziness [Unknown]
  - Poisoning [Unknown]
  - Feeling abnormal [Unknown]
  - Product taste abnormal [Unknown]
  - Face injury [Unknown]
  - Syncope [Unknown]
  - Malaise [Unknown]
  - Cough [Unknown]
  - Ear injury [Unknown]
  - Limb injury [Unknown]
  - Nausea [Unknown]
  - Asthenia [Unknown]

NARRATIVE: CASE EVENT DATE: 20170730
